FAERS Safety Report 11662114 (Version 1)
Quarter: 2015Q4

REPORT INFORMATION
  Report Type: Spontaneous
  Country: US (occurrence: US)
  Receive Date: 20151026
  Receipt Date: 20151026
  Transmission Date: 20160304
  Serious: No
  Sender: FDA-Public Use
  Company Number: US-MEDA-2015100051

PATIENT
  Age: 9 Year
  Sex: Female

DRUGS (1)
  1. AEROSPAN [Suspect]
     Active Substance: FLUNISOLIDE

REACTIONS (7)
  - Abnormal behaviour [Unknown]
  - Educational problem [Unknown]
  - Nightmare [Unknown]
  - Abdominal discomfort [Unknown]
  - Insomnia [Unknown]
  - Somnambulism [Unknown]
  - Diarrhoea [Unknown]
